FAERS Safety Report 16180868 (Version 3)
Quarter: 2019Q2

REPORT INFORMATION
  Report Type: Spontaneous
  Country: US (occurrence: US)
  Receive Date: 20190410
  Receipt Date: 20190521
  Transmission Date: 20190711
  Serious: Yes (Death, Other)
  Sender: FDA-Public Use
  Company Number: PHEH2019US015046

PATIENT
  Sex: Male

DRUGS (2)
  1. AFINITOR [Suspect]
     Active Substance: EVEROLIMUS
     Indication: CARCINOID TUMOUR OF THE SMALL BOWEL
     Dosage: 5 MG, QD
     Route: 048
     Dates: start: 201603, end: 201903
  2. TELOTRISTAT ETHYL [Suspect]
     Active Substance: TELOTRISTAT ETHYL
     Indication: CARCINOID TUMOUR OF THE SMALL BOWEL
     Dosage: 250 MG, TID
     Route: 048
     Dates: start: 20170503

REACTIONS (7)
  - Peripheral swelling [Unknown]
  - Muscle spasms [Unknown]
  - Abdominal pain [Unknown]
  - Small intestine carcinoma recurrent [Unknown]
  - Carcinoid tumour of the small bowel [Fatal]
  - Dyspnoea [Unknown]
  - Malignant neoplasm progression [Fatal]
